FAERS Safety Report 9723193 (Version 1)
Quarter: 2013Q4

REPORT INFORMATION
  Report Type: Report from Study
  Country: JP (occurrence: JP)
  Receive Date: 20131202
  Receipt Date: 20131202
  Transmission Date: 20140711
  Serious: Yes (Other)
  Sender: FDA-Public Use
  Company Number: JP-B.I. PHARMACEUTICALS,INC./RIDGEFIELD-2013-BI-39289NB

PATIENT
  Age: 72 Year
  Sex: Male
  Weight: 58 kg

DRUGS (8)
  1. PRAZAXA [Suspect]
     Indication: CEREBROVASCULAR ACCIDENT PROPHYLAXIS
     Dosage: 220 MG
     Route: 048
     Dates: start: 20130331, end: 20130427
  2. MAINTATE [Concomitant]
     Dosage: 0.625 MG
     Route: 055
  3. GRAMALIL [Concomitant]
     Dosage: 50 MG
     Route: 048
  4. URALYT [Concomitant]
     Dosage: 3DF
     Route: 048
     Dates: end: 20130425
  5. BESACOLIN [Concomitant]
     Dosage: 2.7 G
     Route: 048
  6. EBRANTIL [Concomitant]
     Dosage: 60 MG
     Route: 048
  7. UROCALUN [Concomitant]
     Dosage: 75 MG
     Route: 048
     Dates: end: 20130425
  8. ZYLORIC [Concomitant]
     Dosage: 200 MG
     Route: 048
     Dates: end: 20130425

REACTIONS (1)
  - Drug eruption [Recovered/Resolved]
